FAERS Safety Report 9690271 (Version 1)
Quarter: 2013Q4

REPORT INFORMATION
  Report Type: Spontaneous
  Country: US (occurrence: US)
  Receive Date: 20131115
  Receipt Date: 20131115
  Transmission Date: 20140711
  Serious: No
  Sender: FDA-Public Use
  Company Number: US-BAYER-2013-139516

PATIENT
  Sex: 0

DRUGS (6)
  1. ALEVE CAPLET [Suspect]
     Indication: HEADACHE
     Dosage: UNK
  2. CLARITIN [Suspect]
     Dosage: UNK
  3. IMITREX [Suspect]
     Dosage: UNK
  4. TYLENOL [PARACETAMOL] [Suspect]
     Dosage: UNK
  5. MOTRIN [Suspect]
     Dosage: UNK
  6. BENADRYL [Suspect]
     Dosage: UNK

REACTIONS (1)
  - Drug ineffective [None]
